FAERS Safety Report 6127435-3 (Version None)
Quarter: 2009Q1

REPORT INFORMATION
  Report Type: 
  Country: None (occurrence: None)
  Receive Date: 20090323
  Receipt Date: 20090310
  Transmission Date: 20090719
  Serious: Yes (Hospitalization)
  Sender: FDA-Public Use
  Company Number: DE-TEVA-187893ISR

PATIENT
  Sex: Male
  Weight: 62 kg

DRUGS (1)
  1. FENTANYL-25 [Suspect]
     Indication: PANCREATIC CARCINOMA METASTATIC
     Route: 062

REACTIONS (1)
  - FAECALOMA [None]
